FAERS Safety Report 14949412 (Version 1)
Quarter: 2018Q2

REPORT INFORMATION
  Report Type: Spontaneous
  Country: US (occurrence: US)
  Receive Date: 20180529
  Receipt Date: 20180529
  Transmission Date: 20180711
  Serious: Yes (Other)
  Sender: FDA-Public Use
  Company Number: US-BIODELIVERY SCIENCES INTERNATIONAL-2016BDSI0099

PATIENT
  Sex: Male

DRUGS (2)
  1. BUPRENORPHINE/NALOXONE [Suspect]
     Active Substance: BUPRENORPHINE\NALOXONE
     Dosage: VARIOUS DOSES, DAILY FOR ABOUT 6 MONTHS, UNKNOWN
     Dates: start: 201604, end: 20161002
  2. BUPRENORPHINE/NALOXONE [Suspect]
     Active Substance: BUPRENORPHINE\NALOXONE
     Indication: DRUG DEPENDENCE
     Dosage: 4 MG
     Dates: start: 2014, end: 201604

REACTIONS (4)
  - Drug withdrawal syndrome [Not Recovered/Not Resolved]
  - Discomfort [Not Recovered/Not Resolved]
  - Self-medication [Recovered/Resolved]
  - Wrong technique in product usage process [Recovered/Resolved]

NARRATIVE: CASE EVENT DATE: 201604
